FAERS Safety Report 4381463-7 (Version None)
Quarter: 2004Q2

REPORT INFORMATION
  Report Type: 
  Country: None (occurrence: None)
  Receive Date: 20040616
  Receipt Date: 20040607
  Transmission Date: 20050107
  Serious: Yes (Other)
  Sender: FDA-Public Use
  Company Number: 2004038245

PATIENT
  Age: 52 Year
  Sex: Female
  Weight: 89.3586 kg

DRUGS (13)
  1. LIPITOR [Suspect]
     Indication: BLOOD CHOLESTEROL INCREASED
     Dosage: 40 MG (40 MG 1 IN 1 D) ORAL
     Route: 048
     Dates: start: 20000101
  2. SALBUTAMOL (SALBUTAMOL) [Concomitant]
  3. PHENTERMINE [Concomitant]
  4. BIMATOPROST (BIMATOPROST) [Concomitant]
  5. METFORMIN HCL [Concomitant]
  6. FLUTICASONE PROPIONATE [Concomitant]
  7. LEVOTHYROXINE SODIUM [Concomitant]
  8. IMIPRAMINE [Concomitant]
  9. LOSARTAN POTASSIUM [Concomitant]
  10. TRIAMTERENE (TRIAMTERENE) [Concomitant]
  11. GABAPENTIN [Concomitant]
  12. OXCARBAZEPINE (OXCARBAZEPINE) [Concomitant]
  13. HYDROCODONE BITARTRATE [Concomitant]

REACTIONS (6)
  - AMNESIA [None]
  - BRAIN DAMAGE [None]
  - CONCUSSION [None]
  - FALL [None]
  - HEADACHE [None]
  - MUSCULAR WEAKNESS [None]
